FAERS Safety Report 15755716 (Version 1)
Quarter: 2018Q4

REPORT INFORMATION
  Report Type: Spontaneous
  Country: US (occurrence: US)
  Receive Date: 20181218
  Receipt Date: 20181218
  Transmission Date: 20190205
  Serious: No
  Sender: FDA-Public Use
  Company Number: None

PATIENT

DRUGS (2)
  1. GLYCOPYRROLATE GLYCOPYRROLATE [Suspect]
     Active Substance: GLYCOPYRROLATE
     Dosage: ROUTE: IM OR IV USE
  2. HYDRALAZINE HCL HYDRALAZINE [Suspect]
     Active Substance: HYDRALAZINE HYDROCHLORIDE

REACTIONS (4)
  - Wrong product stored [None]
  - Product dispensing error [None]
  - Product appearance confusion [None]
  - Product label confusion [None]
